FAERS Safety Report 21686143 (Version 1)
Quarter: 2022Q4

REPORT INFORMATION
  Report Type: Spontaneous
  Country: CA (occurrence: CA)
  Receive Date: 20221206
  Receipt Date: 20221206
  Transmission Date: 20230112
  Serious: Yes (Hospitalization, Other)
  Sender: FDA-Public Use
  Company Number: CA-JNJFOC-20221205135

PATIENT
  Age: 69 Year
  Sex: Female
  Weight: 54 kg

DRUGS (1)
  1. REMICADE [Suspect]
     Active Substance: INFLIXIMAB
     Indication: Crohn^s disease
     Route: 041

REACTIONS (9)
  - Intestinal obstruction [Not Recovered/Not Resolved]
  - Breast mass [Not Recovered/Not Resolved]
  - Back injury [Not Recovered/Not Resolved]
  - Weight increased [Not Recovered/Not Resolved]
  - Intestinal stenosis [Not Recovered/Not Resolved]
  - Back pain [Not Recovered/Not Resolved]
  - Myalgia [Not Recovered/Not Resolved]
  - Pain [Not Recovered/Not Resolved]
  - Off label use [Not Recovered/Not Resolved]
